FAERS Safety Report 10216512 (Version 2)
Quarter: 2014Q2

REPORT INFORMATION
  Report Type: Spontaneous
  Country: US (occurrence: US)
  Receive Date: 20140604
  Receipt Date: 20140617
  Transmission Date: 20141212
  Serious: No
  Sender: FDA-Public Use
  Company Number: US-PFIZER INC-2014148789

PATIENT
  Age: 65 Year
  Sex: Male

DRUGS (1)
  1. XALKORI [Suspect]
     Indication: LUNG NEOPLASM MALIGNANT
     Dosage: 250 MG, 2X/DAY
     Dates: start: 20140506

REACTIONS (2)
  - Dyspnoea [Unknown]
  - Breath sounds abnormal [Unknown]
